FAERS Safety Report 12499316 (Version 2)
Quarter: 2019Q3

REPORT INFORMATION
  Report Type: Spontaneous
  Country: ES (occurrence: ES)
  Receive Date: 20160627
  Receipt Date: 20190726
  Transmission Date: 20191004
  Serious: Yes (Hospitalization, Other)
  Sender: FDA-Public Use
  Company Number: ES-AUROBINDO-AUR-APL-2016-08030

PATIENT

DRUGS (2)
  1. METHOTREXATE. [Suspect]
     Active Substance: METHOTREXATE
     Indication: PRODUCT USED FOR UNKNOWN INDICATION
     Dosage: 25 MG, EVERY WEEK
     Route: 065
  2. CIPROFLOXACIN. [Suspect]
     Active Substance: CIPROFLOXACIN
     Indication: PRODUCT USED FOR UNKNOWN INDICATION
     Route: 065

REACTIONS (13)
  - Pyrexia [Recovered/Resolved]
  - Toxic epidermal necrolysis [Recovered/Resolved]
  - Blister [Recovered/Resolved]
  - Skin erosion [Recovered/Resolved]
  - Oedema [Recovered/Resolved]
  - Bone marrow failure [Recovered/Resolved]
  - Skin ulcer [Recovered/Resolved]
  - Erythema [Recovered/Resolved]
  - Condition aggravated [Recovered/Resolved]
  - Labelled drug-drug interaction medication error [Recovered/Resolved]
  - Nikolsky^s sign [Recovered/Resolved]
  - Pancytopenia [Recovered/Resolved]
  - Toxicity to various agents [Recovered/Resolved]
